FAERS Safety Report 5378311-5 (Version None)
Quarter: 2007Q2

REPORT INFORMATION
  Report Type: 
  Country: None (occurrence: None)
  Receive Date: 20070530
  Receipt Date: 20070216
  Transmission Date: 20071010
  Serious: No
  Sender: FDA-Public Use
  Company Number: 2007PV030258

PATIENT
  Age: 72 Year
  Sex: Female
  Weight: 89.8122 kg

DRUGS (4)
  1. BYETTA [Suspect]
     Indication: DIABETES MELLITUS NON-INSULIN-DEPENDENT
     Dosage: 10 MCG; BID SC, 5 MCG; BID; SC
     Route: 058
     Dates: start: 20061201, end: 20061201
  2. BYETTA [Suspect]
     Indication: DIABETES MELLITUS NON-INSULIN-DEPENDENT
     Dosage: 10 MCG; BID SC, 5 MCG; BID; SC
     Route: 058
     Dates: start: 20070101
  3. GLYBURIDE [Concomitant]
  4. METFORMIN HCL [Concomitant]

REACTIONS (1)
  - ALOPECIA [None]
